FAERS Safety Report 6910778-0 (Version None)
Quarter: 2010Q3

REPORT INFORMATION
  Report Type: 
  Country: None (occurrence: None)
  Receive Date: 20100806
  Receipt Date: 20100511
  Transmission Date: 20110219
  Serious: Yes (Hospitalization, Other)
  Sender: FDA-Public Use
  Company Number: PHHY2009GB56759

PATIENT
  Sex: Male

DRUGS (3)
  1. EXJADE [Suspect]
     Indication: IRON OVERLOAD
     Dosage: 500 MG/DAY
     Route: 048
     Dates: start: 20091203, end: 20100401
  2. ANTIBIOTICS [Concomitant]
  3. ANALGESICS [Concomitant]

REACTIONS (8)
  - CLOSTRIDIAL INFECTION [None]
  - DIARRHOEA [None]
  - DRUG INEFFECTIVE [None]
  - FATIGUE [None]
  - RECTAL HAEMORRHAGE [None]
  - SLEEP DISORDER [None]
  - SOMNOLENCE [None]
  - VOMITING [None]
